FAERS Safety Report 14055480 (Version 1)
Quarter: 2017Q4

REPORT INFORMATION
  Report Type: Spontaneous
  Country: US (occurrence: US)
  Receive Date: 20171006
  Receipt Date: 20171006
  Transmission Date: 20180321
  Serious: No
  Sender: FDA-Public Use
  Company Number: US-JNJFOC-20170828179

PATIENT
  Age: 51 Year
  Sex: Female
  Weight: 70.31 kg

DRUGS (5)
  1. MENS ROGAINE EXTRA STRENGTH [Suspect]
     Active Substance: MINOXIDIL
     Indication: ALOPECIA
     Dosage: ABOUT 1/2 CAP
     Route: 061
     Dates: start: 2017, end: 20170827
  2. AMBIEN [Concomitant]
     Active Substance: ZOLPIDEM TARTRATE
     Indication: SLEEP DISORDER THERAPY
     Dosage: AS NEEDED
     Route: 065
  3. LISINOPRIL. [Concomitant]
     Active Substance: LISINOPRIL
     Indication: HYPERTENSION
     Dosage: DAILY
     Route: 065
  4. MENS ROGAINE EXTRA STRENGTH [Suspect]
     Active Substance: MINOXIDIL
     Route: 061
  5. ADVIL [Concomitant]
     Active Substance: IBUPROFEN
     Indication: HEADACHE
     Dosage: AS NEEDED
     Route: 065

REACTIONS (3)
  - Headache [Not Recovered/Not Resolved]
  - Intentional product misuse [Unknown]
  - Product use issue [Unknown]

NARRATIVE: CASE EVENT DATE: 2017
